FAERS Safety Report 9526809 (Version 3)
Quarter: 2015Q1

REPORT INFORMATION
  Report Type: Spontaneous
  Country: DK (occurrence: DK)
  Receive Date: 20130916
  Receipt Date: 20150129
  Transmission Date: 20150721
  Serious: Yes (Congenital Anomaly, Other)
  Sender: FDA-Public Use
  Company Number: DK-GLAXOSMITHKLINE-B0922735A

PATIENT
  Age: 1 Day
  Sex: Male
  Weight: 2.9 kg

DRUGS (1)
  1. ONDANSETRON [Suspect]
     Active Substance: ONDANSETRON
     Indication: NAUSEA
     Dosage: 4 MG, TID
     Route: 064
     Dates: start: 20110217

REACTIONS (4)
  - Hypospadias [Unknown]
  - Atrioventricular septal defect [Unknown]
  - Exposure during pregnancy [Unknown]
  - Cryptorchism [Unknown]

NARRATIVE: CASE EVENT DATE: 20110217
